FAERS Safety Report 5456970-6 (Version None)
Quarter: 2007Q3

REPORT INFORMATION
  Report Type: 
  Country: None (occurrence: None)
  Receive Date: 20070918
  Receipt Date: 20070716
  Transmission Date: 20080115
  Serious: Yes (Other)
  Sender: FDA-Public Use
  Company Number: US-ASTRAZENECA-2006UW27603

PATIENT
  Age: 38 Year
  Sex: Male

DRUGS (4)
  1. SEROQUEL [Suspect]
     Route: 048
  2. RISPERDAL [Suspect]
     Indication: BIPOLAR DISORDER
     Dates: start: 20050823, end: 20050901
  3. RISPERDAL [Suspect]
     Indication: SCHIZOPHRENIA
     Dates: start: 20050823, end: 20050901
  4. ZYPREXA [Suspect]

REACTIONS (2)
  - CEREBROVASCULAR ACCIDENT [None]
  - TARDIVE DYSKINESIA [None]
